FAERS Safety Report 7701391-6 (Version None)
Quarter: 2011Q3

REPORT INFORMATION
  Report Type: 
  Country: None (occurrence: None)
  Receive Date: 20110822
  Receipt Date: 20110708
  Transmission Date: 20111222
  Serious: Yes (Hospitalization)
  Sender: FDA-Public Use
  Company Number: PHHY2011FR62496

PATIENT
  Sex: Male
  Weight: 60 kg

DRUGS (4)
  1. IMATINIB MESYLATE [Suspect]
     Indication: CHRONIC MYELOID LEUKAEMIA
     Dosage: UNK
     Dates: start: 20030815, end: 20100305
  2. PENTASA [Concomitant]
     Indication: CROHN'S DISEASE
     Dosage: UNK
  3. SPRYCEL [Interacting]
     Indication: CHRONIC MYELOID LEUKAEMIA
     Dosage: 100 MG, DAILY
     Dates: start: 20100305, end: 20101001
  4. ENTOCORT EC [Concomitant]
     Indication: CROHN'S DISEASE
     Dosage: UNK

REACTIONS (5)
  - CROHN'S DISEASE [None]
  - DEPRESSION [None]
  - GASTROINTESTINAL ANASTOMOTIC LEAK [None]
  - INTESTINAL STENOSIS [None]
  - INTESTINAL OBSTRUCTION [None]
